FAERS Safety Report 9029032 (Version 4)
Quarter: 2013Q3

REPORT INFORMATION
  Report Type: Report from Study
  Country: CA (occurrence: CA)
  Receive Date: 20130122
  Receipt Date: 20130920
  Transmission Date: 20140515
  Serious: Yes (Other)
  Sender: FDA-Public Use
  Company Number: PHHY2013CA005638

PATIENT
  Sex: Female

DRUGS (3)
  1. GILENYA [Suspect]
     Indication: RELAPSING-REMITTING MULTIPLE SCLEROSIS
     Dosage: 0.5 MG, QD
     Route: 048
     Dates: start: 20110610, end: 201202
  2. GILENYA [Suspect]
     Dosage: 0.5 MG, QD
     Route: 048
     Dates: start: 20120612
  3. SYNTHROID [Concomitant]

REACTIONS (6)
  - Jugular vein thrombosis [Recovering/Resolving]
  - Atrial fibrillation [Recovering/Resolving]
  - Palpitations [Unknown]
  - Dizziness [Unknown]
  - Presyncope [Recovering/Resolving]
  - Muscle spasms [Unknown]
